FAERS Safety Report 11771667 (Version 1)
Quarter: 2015Q4

REPORT INFORMATION
  Report Type: Report from Study
  Country: JP (occurrence: JP)
  Receive Date: 20151124
  Receipt Date: 20151124
  Transmission Date: 20160304
  Serious: Yes (Hospitalization, Other)
  Sender: FDA-Public Use
  Company Number: JP-ASTELLAS-2015JP007875

PATIENT
  Age: 82 Year
  Sex: Female
  Weight: 36 kg

DRUGS (15)
  1. MULCHINA [Concomitant]
     Indication: PROPHYLAXIS
     Dosage: UNK, UNK, 4 TIMES DAILY
     Route: 047
     Dates: start: 201310
  2. CALONAL [Concomitant]
     Active Substance: ACETAMINOPHEN
     Indication: CONTUSION
  3. CALONAL [Concomitant]
     Active Substance: ACETAMINOPHEN
     Indication: DEHYDRATION
  4. BETANIS [Suspect]
     Active Substance: MIRABEGRON
     Indication: HYPERTONIC BLADDER
     Route: 048
     Dates: start: 20141119, end: 20150127
  5. PLAVIX [Concomitant]
     Active Substance: CLOPIDOGREL BISULFATE
     Indication: PROPHYLAXIS
     Route: 048
     Dates: start: 20110713
  6. EVISTA [Concomitant]
     Active Substance: RALOXIFENE HYDROCHLORIDE
     Indication: OSTEOPOROSIS
     Route: 048
     Dates: start: 20110713
  7. MIRABEGRON [Suspect]
     Active Substance: MIRABEGRON
     Indication: HYPERTONIC BLADDER
     Dosage: 50 MG, ONCE DAILY, AFTER BREAKFAST
     Route: 048
     Dates: start: 20150128, end: 20151110
  8. BETANIS [Suspect]
     Active Substance: MIRABEGRON
     Route: 048
     Dates: start: 20151111
  9. DETRUSITOL [Suspect]
     Active Substance: TOLTERODINE TARTRATE
     Indication: HYPERTONIC BLADDER
     Dosage: 4 MG, ONCE DAILY, AFTER BREAKFAST
     Route: 048
     Dates: start: 20150211, end: 20151110
  10. MULCHINA [Concomitant]
     Indication: CONJUNCTIVITIS
  11. PRAVASTATIN [Concomitant]
     Active Substance: PRAVASTATIN\PRAVASTATIN SODIUM
     Indication: DYSLIPIDAEMIA
     Route: 048
     Dates: start: 20110615
  12. CALONAL [Concomitant]
     Active Substance: ACETAMINOPHEN
     Indication: CONTUSION
     Route: 048
     Dates: start: 20150304, end: 20150306
  13. CALONAL [Concomitant]
     Active Substance: ACETAMINOPHEN
     Indication: CONTUSION
  14. CALCITRIOL. [Concomitant]
     Active Substance: CALCITRIOL
     Indication: OSTEOPOROSIS
     Dosage: 0.5 ?G, ONCE DAILY
     Route: 048
     Dates: start: 20110713
  15. ADOFEED [Concomitant]
     Active Substance: FLURBIPROFEN
     Indication: CONTUSION
     Route: 061
     Dates: start: 20150811, end: 20150910

REACTIONS (5)
  - Contusion [Recovered/Resolved]
  - Disuse syndrome [Not Recovered/Not Resolved]
  - Rhabdomyolysis [Recovered/Resolved]
  - Dehydration [Recovered/Resolved]
  - Contusion [Recovered/Resolved]

NARRATIVE: CASE EVENT DATE: 20150304
